FAERS Safety Report 19741279 (Version 1)
Quarter: 2021Q3

REPORT INFORMATION
  Report Type: Spontaneous
  Country: US (occurrence: US)
  Receive Date: 20210824
  Receipt Date: 20210824
  Transmission Date: 20211014
  Serious: No
  Sender: FDA-Public Use
  Company Number: US-TAKEDA-2021TUS052352

PATIENT
  Age: 60 Year
  Sex: Male
  Weight: 82 kg

DRUGS (13)
  1. GATTEX [Suspect]
     Active Substance: TEDUGLUTIDE\WATER
     Indication: ILEOSTOMY
  2. GATTEX [Suspect]
     Active Substance: TEDUGLUTIDE\WATER
     Indication: CROHN^S DISEASE
     Dosage: 5 MILLIGRAM, QD
     Route: 058
  3. GATTEX [Suspect]
     Active Substance: TEDUGLUTIDE\WATER
     Indication: COLON INJURY
  4. GATTEX [Suspect]
     Active Substance: TEDUGLUTIDE\WATER
     Indication: ILEOSTOMY
  5. GATTEX [Suspect]
     Active Substance: TEDUGLUTIDE\WATER
     Indication: ILEOSTOMY
  6. GATTEX [Suspect]
     Active Substance: TEDUGLUTIDE\WATER
     Indication: CROHN^S DISEASE
     Dosage: 5 MILLIGRAM, QD
     Route: 058
  7. GATTEX [Suspect]
     Active Substance: TEDUGLUTIDE\WATER
     Indication: COLON INJURY
  8. GATTEX [Suspect]
     Active Substance: TEDUGLUTIDE\WATER
     Indication: COLON INJURY
  9. GATTEX [Suspect]
     Active Substance: TEDUGLUTIDE\WATER
     Indication: COLON INJURY
  10. GATTEX [Suspect]
     Active Substance: TEDUGLUTIDE\WATER
     Indication: CROHN^S DISEASE
     Dosage: 5 MILLIGRAM, QD
     Route: 058
  11. GATTEX [Suspect]
     Active Substance: TEDUGLUTIDE\WATER
     Indication: CROHN^S DISEASE
     Dosage: 5 MILLIGRAM, QD
     Route: 058
  12. GATTEX [Suspect]
     Active Substance: TEDUGLUTIDE\WATER
     Indication: ILEOSTOMY
  13. COVID?19 VACCINE [Concomitant]

REACTIONS (3)
  - Pain [Unknown]
  - Off label use [Unknown]
  - Headache [Unknown]
